FAERS Safety Report 4296127-8 (Version None)
Quarter: 2004Q1

REPORT INFORMATION
  Report Type: 
  Country: None (occurrence: None)
  Receive Date: 20040217
  Receipt Date: 20030821
  Transmission Date: 20041129
  Serious: No
  Sender: FDA-Public Use
  Company Number: US-GLAXOSMITHKLINE-A0422920A

PATIENT
  Age: 61 Year
  Sex: Female
  Weight: 68.2 kg

DRUGS (10)
  1. LAMICTAL [Suspect]
     Indication: BIPOLAR DISORDER
     Dosage: 100MG TWICE PER DAY
     Route: 048
     Dates: start: 20030401, end: 20030101
  2. PREMARIN [Concomitant]
  3. ASPIRIN [Concomitant]
  4. MULTI-VITAMIN [Concomitant]
  5. HYDROCHLOROTHIAZIDE [Concomitant]
  6. NEXIUM [Concomitant]
  7. VALIUM [Concomitant]
  8. SYNTHROID [Concomitant]
  9. PAXIL [Concomitant]
  10. LITHIUM CARBONATE [Concomitant]

REACTIONS (2)
  - PRURITUS [None]
  - RASH [None]
